FAERS Safety Report 6229385-0 (Version None)
Quarter: 2009Q2

REPORT INFORMATION
  Report Type: 
  Country: None (occurrence: None)
  Receive Date: 20090615
  Receipt Date: 20090603
  Transmission Date: 20091009
  Serious: Yes (Other)
  Sender: FDA-Public Use
  Company Number: US-AMGEN-QUU349932

PATIENT
  Sex: Female

DRUGS (1)
  1. ENBREL [Suspect]
     Indication: PSORIATIC ARTHROPATHY
     Dates: start: 20031001

REACTIONS (5)
  - AGGRESSION [None]
  - ANGER [None]
  - MOOD SWINGS [None]
  - PARANOIA [None]
  - SURGERY [None]
